FAERS Safety Report 23523096 (Version 4)
Quarter: 2025Q1

REPORT INFORMATION
  Report Type: Report from Study
  Country: CA (occurrence: CA)
  Receive Date: 20240214
  Receipt Date: 20250304
  Transmission Date: 20250408
  Serious: Yes (Other)
  Sender: PFIZER
  Company Number: CA-PFIZER INC-202400038161

PATIENT
  Age: 74 Year
  Sex: Male
  Weight: 70 kg

DRUGS (17)
  1. PAXLOVID [Suspect]
     Active Substance: NIRMATRELVIR\RITONAVIR
     Indication: COVID-19 treatment
  2. LUSPATERCEPT [Suspect]
     Active Substance: LUSPATERCEPT
     Indication: Anaemia of malignant disease
     Dosage: 1.33 MG/KG, EVERY 3 WEEKS
     Route: 058
  3. LUSPATERCEPT [Suspect]
     Active Substance: LUSPATERCEPT
     Dosage: 1.0 MG/KG, EVERY 3 WEEKS
     Route: 058
  4. LUSPATERCEPT [Suspect]
     Active Substance: LUSPATERCEPT
     Dosage: 1.33 MG/KG, EVERY 3 WEEKS
     Route: 058
  5. LUSPATERCEPT [Suspect]
     Active Substance: LUSPATERCEPT
     Dosage: 1.33 MG/KG, EVERY 3 WEEKS
     Route: 058
  6. LUSPATERCEPT [Suspect]
     Active Substance: LUSPATERCEPT
     Dosage: 1.75 MG/KG, EVERY 3 WEEKS
     Route: 058
  7. LUSPATERCEPT [Suspect]
     Active Substance: LUSPATERCEPT
     Dosage: 1.75 MG/KG, EVERY 3 WEEKS
     Route: 058
  8. LUSPATERCEPT [Suspect]
     Active Substance: LUSPATERCEPT
     Indication: Anaemia of malignant disease
     Dosage: 1.0 MG/KG, EVERY 3 WEEKS
     Route: 058
  9. LUSPATERCEPT [Suspect]
     Active Substance: LUSPATERCEPT
     Dosage: 71 MG, EVERY 3 WEEKS
     Route: 058
  10. ASPIRIN [Concomitant]
     Active Substance: ASPIRIN
  11. GLIPIZIDE [Concomitant]
     Active Substance: GLIPIZIDE
  12. INSULIN NOS [Concomitant]
     Active Substance: INSULIN NOS
  13. MAGNESIUM [Concomitant]
     Active Substance: MAGNESIUM
  14. METOPROLOL [Concomitant]
     Active Substance: METOPROLOL
  15. RAMIPRIL [Concomitant]
     Active Substance: RAMIPRIL
  16. VITAMIN D NOS [Concomitant]
     Active Substance: CHOLECALCIFEROL\ERGOCALCIFEROL
  17. ZESTRIL [Concomitant]
     Active Substance: LISINOPRIL

REACTIONS (12)
  - Diarrhoea [Not Recovered/Not Resolved]
  - Dizziness [Not Recovered/Not Resolved]
  - Fatigue [Not Recovered/Not Resolved]
  - Gait disturbance [Not Recovered/Not Resolved]
  - Muscular weakness [Not Recovered/Not Resolved]
  - Weight decreased [Not Recovered/Not Resolved]
  - Dyspnoea [Not Recovered/Not Resolved]
  - Dyspnoea exertional [Not Recovered/Not Resolved]
  - COVID-19 [Not Recovered/Not Resolved]
  - Haemoglobin decreased [Not Recovered/Not Resolved]
  - Therapy interrupted [Not Recovered/Not Resolved]
  - Muscle spasms [Not Recovered/Not Resolved]
